FAERS Safety Report 14886043 (Version 3)
Quarter: 2019Q1

REPORT INFORMATION
  Report Type: Spontaneous
  Country: US (occurrence: US)
  Receive Date: 20180512
  Receipt Date: 20190313
  Transmission Date: 20190417
  Serious: Yes (Life-Threatening, Hospitalization, Other)
  Sender: FDA-Public Use
  Company Number: US-TORRENT-00006143

PATIENT
  Age: 21 Year
  Sex: Male

DRUGS (3)
  1. RISPERIDONE. [Suspect]
     Active Substance: RISPERIDONE
     Indication: SCHIZOPHRENIA
     Dosage: IN THE MORNING
     Route: 048
  2. PALIPERIDONE PALMITATE [Interacting]
     Active Substance: PALIPERIDONE PALMITATE
     Indication: ACUTE PSYCHOSIS
     Route: 030
  3. BENZATROPINE [Interacting]
     Active Substance: BENZTROPINE
     Indication: ACUTE PSYCHOSIS
     Route: 048

REACTIONS (5)
  - Sinus tachycardia [Recovered/Resolved]
  - Autonomic nervous system imbalance [Not Recovered/Not Resolved]
  - Condition aggravated [Not Recovered/Not Resolved]
  - Drug interaction [Not Recovered/Not Resolved]
  - Supraventricular extrasystoles [Unknown]
